FAERS Safety Report 14454029 (Version 1)
Quarter: 2018Q1

REPORT INFORMATION
  Report Type: Report from Study
  Country: US (occurrence: US)
  Receive Date: 20180129
  Receipt Date: 20180129
  Transmission Date: 20180509
  Serious: Yes (Hospitalization, Other)
  Sender: FDA-Public Use
  Company Number: US-BAYER-2017-222012

PATIENT
  Age: 72 Year
  Sex: Female

DRUGS (4)
  1. NEXAVAR [Suspect]
     Active Substance: SORAFENIB
     Indication: HEPATOCELLULAR CARCINOMA
     Dosage: 200 MG, BID
     Route: 048
     Dates: start: 20171115, end: 20171121
  2. NEXAVAR [Suspect]
     Active Substance: SORAFENIB
     Indication: HEPATOCELLULAR CARCINOMA
     Dosage: 400 MG, BID
     Route: 048
     Dates: start: 20171129, end: 20180108
  3. NEXAVAR [Suspect]
     Active Substance: SORAFENIB
     Indication: HEPATOCELLULAR CARCINOMA
     Dosage: 200 MG, QD
     Route: 048
     Dates: start: 20171108, end: 20171114
  4. NEXAVAR [Suspect]
     Active Substance: SORAFENIB
     Indication: HEPATOCELLULAR CARCINOMA
     Dosage: 200MG IN AM AND 400MG IN PM
     Route: 048
     Dates: start: 20171122, end: 20171128

REACTIONS (16)
  - Decreased appetite [None]
  - Dyspnoea [None]
  - Abdominal distension [None]
  - Diarrhoea [None]
  - Exercise tolerance decreased [None]
  - Blood bilirubin increased [None]
  - Blood test abnormal [None]
  - Ascites [None]
  - Blood pressure increased [None]
  - Fatigue [None]
  - Weight decreased [None]
  - Off label use [None]
  - Device malfunction [None]
  - Terminal state [None]
  - Tongue erythema [Recovered/Resolved]
  - Nausea [None]

NARRATIVE: CASE EVENT DATE: 201711
